FAERS Safety Report 11499817 (Version 4)
Quarter: 2015Q4

REPORT INFORMATION
  Report Type: Report from Study
  Country: JP (occurrence: JP)
  Receive Date: 20150914
  Receipt Date: 20151130
  Transmission Date: 20160304
  Serious: Yes (Hospitalization)
  Sender: FDA-Public Use
  Company Number: PHJP2015JP015584

PATIENT
  Age: 71 Year
  Sex: Female
  Weight: 52 kg

DRUGS (14)
  1. KYTRIL [Concomitant]
     Active Substance: GRANISETRON HYDROCHLORIDE
     Indication: PROPHYLAXIS
     Dosage: 2 MG, QD
     Route: 048
     Dates: start: 20151008
  2. FARYDAK [Suspect]
     Active Substance: PANOBINOSTAT
     Dosage: 15 MG, QD, 1 CYCLE 21 DAYS, GIVEN ON DAY 1, 3, 5, 8 AND 10
     Route: 048
     Dates: start: 20151028
  3. RABEPRAZOLE NA [Concomitant]
     Active Substance: RABEPRAZOLE SODIUM
     Indication: PROPHYLAXIS
     Dosage: 10 MG, QD
     Route: 048
     Dates: start: 20140212
  4. BORTEZOMIB [Suspect]
     Active Substance: BORTEZOMIB
     Indication: PLASMA CELL MYELOMA
     Dosage: 1.3 MG/M2, 1 CYLCE 21 DAY, GIVEN ON DAY 1, 4, 8 AND 11
     Route: 058
     Dates: start: 20150824
  5. KAYTWO [Concomitant]
     Active Substance: MENATETRENONE
     Indication: PRODUCT USED FOR UNKNOWN INDICATION
     Dosage: UNK
     Route: 065
     Dates: start: 20150907
  6. ALDACTONE [Concomitant]
     Active Substance: SPIRONOLACTONE
     Indication: OEDEMA PERIPHERAL
     Dosage: 60 MG, QD
     Route: 048
     Dates: start: 20150928
  7. FARYDAK [Suspect]
     Active Substance: PANOBINOSTAT
     Indication: PLASMA CELL MYELOMA
     Dosage: 20 MG, QD, 1 CYCLE 21 DAYS, GIVEN ON DAY 1, 3, 5, 8 AND 10
     Route: 048
     Dates: start: 20150824
  8. DEXAMETHASONE. [Suspect]
     Active Substance: DEXAMETHASONE
     Dosage: 20 MG, 1CYCLE 21 DAYS, GIVEN ON DAY 1, 2, 4, 6, 8, 9 AND 11
     Route: 048
     Dates: start: 20151028
  9. FEBURIC [Concomitant]
     Active Substance: FEBUXOSTAT
     Indication: PROPHYLAXIS
     Dosage: 10 MG, QD
     Route: 048
     Dates: start: 20140822
  10. CELECOX [Concomitant]
     Active Substance: CELECOXIB
     Indication: PAIN
     Dosage: 50 MG, BID
     Route: 048
     Dates: start: 20101018
  11. BORTEZOMIB [Suspect]
     Active Substance: BORTEZOMIB
     Dosage: 1.3 MG/M2, 1 CYLCE 21 DAY, GIVEN ON DAY 1, 4, 8 AND 11
     Route: 058
     Dates: start: 20151028
  12. DEXAMETHASONE. [Suspect]
     Active Substance: DEXAMETHASONE
     Indication: PLASMA CELL MYELOMA
     Dosage: 20 MG, 1CYCLE 21 DAYS, GIVEN ON DAY 1, 2, 4, 6, 8, 9 AND 11
     Route: 048
     Dates: start: 20150824
  13. LUPRAC [Concomitant]
     Active Substance: TORSEMIDE
     Indication: OEDEMA PERIPHERAL
     Dosage: 4 MG, QD
     Route: 048
     Dates: start: 20140509
  14. WARFARIN [Concomitant]
     Active Substance: WARFARIN
     Indication: PROPHYLAXIS
     Dosage: 4 MG, QD
     Route: 048
     Dates: start: 20140509, end: 20150906

REACTIONS (3)
  - Platelet count decreased [Recovered/Resolved]
  - Herpes zoster [Recovered/Resolved]
  - Coagulopathy [Recovered/Resolved]

NARRATIVE: CASE EVENT DATE: 20150907
